FAERS Safety Report 4275607-5 (Version None)
Quarter: 2004Q1

REPORT INFORMATION
  Report Type: 
  Country: None (occurrence: None)
  Receive Date: 20040116
  Receipt Date: 20040105
  Transmission Date: 20041129
  Serious: Yes (Hospitalization)
  Sender: FDA-Public Use
  Company Number: US-JNJFOC-20030803572

PATIENT
  Age: 43 Year
  Sex: Female
  Weight: 46.7205 kg

DRUGS (13)
  1. REMICADE [Suspect]
     Indication: UVEITIS
     Dosage: INTRAVENOUS
     Route: 042
     Dates: start: 20021003
  2. REMICADE [Suspect]
     Indication: UVEITIS
     Dosage: INTRAVENOUS
     Route: 042
     Dates: start: 20021017
  3. REMICADE [Suspect]
     Indication: UVEITIS
     Dosage: INTRAVENOUS
     Route: 042
     Dates: start: 20021114
  4. REMICADE [Suspect]
     Indication: UVEITIS
     Dosage: INTRAVENOUS
     Route: 042
     Dates: start: 20030115
  5. REMICADE [Suspect]
     Indication: UVEITIS
     Dosage: INTRAVENOUS
     Route: 042
     Dates: start: 20030424
  6. REMICADE [Suspect]
     Indication: UVEITIS
     Dosage: INTRAVENOUS
     Route: 042
     Dates: start: 20030523
  7. REMICADE [Suspect]
     Indication: UVEITIS
     Dosage: INTRAVENOUS
     Route: 042
     Dates: start: 20030717
  8. PREFORTE (PREDNISOLONE ACETATE) [Concomitant]
  9. FOLIC ACID [Concomitant]
  10. METHOTREXATE [Concomitant]
  11. PREDNISONE [Suspect]
     Indication: UVEITIS
     Dosage: 10-20 MG QD
  12. CYCLOGYL (CYCLOPENTOLATE HYDROCHLORIDE) [Concomitant]
  13. INDERAL [Concomitant]

REACTIONS (15)
  - ANGINA PECTORIS [None]
  - ATHEROSCLEROSIS [None]
  - BRADYARRHYTHMIA [None]
  - CARDIAC ARREST [None]
  - CHEST PAIN [None]
  - CORONARY ARTERY OCCLUSION [None]
  - DYSPNOEA [None]
  - EJECTION FRACTION DECREASED [None]
  - ELECTROCARDIOGRAM T WAVE BIPHASIC [None]
  - ELECTROCARDIOGRAM T WAVE INVERSION [None]
  - FLUSHING [None]
  - LOSS OF CONSCIOUSNESS [None]
  - MYOCARDIAL INFARCTION [None]
  - PAIN IN EXTREMITY [None]
  - SINUS BRADYCARDIA [None]
